FAERS Safety Report 10934732 (Version 2)
Quarter: 2015Q4

REPORT INFORMATION
  Report Type: Spontaneous
  Country: US (occurrence: US)
  Receive Date: 20150320
  Receipt Date: 20151117
  Transmission Date: 20160304
  Serious: Yes (Death, Congenital Anomaly, Other)
  Sender: FDA-Public Use
  Company Number: US-ELI_LILLY_AND_COMPANY-US201503005344

PATIENT

DRUGS (1)
  1. PROZAC [Suspect]
     Active Substance: FLUOXETINE HYDROCHLORIDE
     Indication: PRODUCT USED FOR UNKNOWN INDICATION
     Dosage: UNK, UNKNOWN
     Route: 064

REACTIONS (4)
  - Premature baby [Unknown]
  - Foetal exposure during pregnancy [Recovered/Resolved]
  - Anencephaly [Fatal]
  - Low birth weight baby [Unknown]
